FAERS Safety Report 8084286-0 (Version None)
Quarter: 2012Q1

REPORT INFORMATION
  Report Type: 
  Country: None (occurrence: None)
  Receive Date: 20120128
  Receipt Date: 20110307
  Transmission Date: 20120608
  Serious: No
  Sender: FDA-Public Use
  Company Number: US-ABBOTT-11P-163-0709716-00

PATIENT
  Age: 54 Year
  Sex: Female

DRUGS (9)
  1. IMIPRAMINE [Concomitant]
     Indication: URINARY INCONTINENCE
     Dosage: 1 PO DAILY
     Route: 048
  2. MELOXICAM [Concomitant]
     Indication: NEUROPATHY PERIPHERAL
     Dosage: 1 PO DAILY
     Route: 048
  3. SERTRALINE HYDROCHLORIDE [Concomitant]
     Indication: DEPRESSION
     Dosage: 1 PO DAILY
     Route: 048
  4. OTHER MEDICATIONS [Concomitant]
     Indication: PAIN
  5. CLONAZEPAM [Concomitant]
     Indication: DEPRESSION
     Dosage: 1 PO DAILY
     Route: 048
  6. OTHER MEDICATIONS [Concomitant]
     Indication: CONSTIPATION
  7. HUMIRA [Suspect]
     Indication: CROHN'S DISEASE
     Dates: start: 20090101
  8. MESALAMINE [Concomitant]
     Indication: CROHN'S DISEASE
     Route: 048
  9. VALACYCLOVIR [Concomitant]
     Indication: HERPES SIMPLEX
     Dosage: 1 PO DAILY
     Route: 048

REACTIONS (2)
  - DRUG INEFFECTIVE [None]
  - CONTUSION [None]
